FAERS Safety Report 20224676 (Version 5)
Quarter: 2022Q1

REPORT INFORMATION
  Report Type: Report from Study
  Country: US (occurrence: US)
  Receive Date: 20211223
  Receipt Date: 20220304
  Transmission Date: 20220424
  Serious: Yes (Hospitalization)
  Sender: FDA-Public Use
  Company Number: US-TEVA-2021-US-1989296

PATIENT
  Age: 4 Year
  Sex: Male
  Weight: 22.6 kg

DRUGS (17)
  1. METHOTREXATE [Suspect]
     Active Substance: METHOTREXATE
     Indication: Acute lymphocytic leukaemia
     Route: 037
     Dates: start: 20190523
  2. METHOTREXATE [Suspect]
     Active Substance: METHOTREXATE
     Route: 037
     Dates: start: 20210211, end: 20210317
  3. VINCRISTINE [Suspect]
     Active Substance: VINCRISTINE
     Indication: Acute lymphocytic leukaemia
     Dosage: DAY 1, 29, 57
     Route: 042
     Dates: start: 20190606
  4. VINCRISTINE [Suspect]
     Active Substance: VINCRISTINE
     Dosage: DAY 1, 29, 57
     Route: 042
     Dates: start: 20210211
  5. PREDNISONE [Suspect]
     Active Substance: PREDNISONE
     Indication: Acute lymphocytic leukaemia
     Dosage: 70 MILLIGRAM DAILY;
     Route: 048
     Dates: start: 20200313
  6. PREDNISONE [Suspect]
     Active Substance: PREDNISONE
     Dosage: 70 MILLIGRAM DAILY;
     Route: 048
     Dates: start: 20210211
  7. METHOTREXATE [Suspect]
     Active Substance: METHOTREXATE
     Indication: Acute lymphocytic leukaemia
     Dosage: DAY 8,15,22,29,36,43,50
     Route: 048
     Dates: start: 20200320, end: 20210115
  8. METHOTREXATE [Suspect]
     Active Substance: METHOTREXATE
     Dosage: DAY 8,15,22,29,36,43,50
     Route: 048
     Dates: start: 20210202
  9. METHOTREXATE [Suspect]
     Active Substance: METHOTREXATE
     Dosage: DAY 8, 15, 22, 29, 36, 43, 50
     Route: 048
     Dates: start: 20210218, end: 20210325
  10. METHOTREXATE [Suspect]
     Active Substance: METHOTREXATE
     Route: 048
     Dates: start: 20210328
  11. MERCAPTOPURINE [Suspect]
     Active Substance: MERCAPTOPURINE
     Indication: Acute lymphocytic leukaemia
     Dosage: 75 MG/M2/DOSE DAY 1-84
     Route: 048
     Dates: start: 20190323, end: 20210115
  12. MERCAPTOPURINE [Suspect]
     Active Substance: MERCAPTOPURINE
     Dosage: 75 MG/M2/DOSE DAY 1-84
     Route: 048
     Dates: start: 20210202
  13. MERCAPTOPURINE [Suspect]
     Active Substance: MERCAPTOPURINE
     Dosage: 75 MG/M2/DOSE DAY 1-84
     Route: 048
     Dates: start: 20210211, end: 20210317
  14. MERCAPTOPURINE [Suspect]
     Active Substance: MERCAPTOPURINE
     Route: 048
     Dates: start: 20210328
  15. RUXOLITINIB [Suspect]
     Active Substance: RUXOLITINIB
     Indication: Acute lymphocytic leukaemia
     Dosage: 80 MILLIGRAM DAILY; D 1-14, 29-42
     Route: 048
     Dates: start: 20190523, end: 20210115
  16. RUXOLITINIB [Suspect]
     Active Substance: RUXOLITINIB
     Dosage: 80 MILLIGRAM DAILY; D 1-14, 29-42
     Route: 048
     Dates: start: 20210211, end: 20210325
  17. CLINDAMYCIN [Concomitant]
     Active Substance: CLINDAMYCIN
     Route: 065
     Dates: start: 20210115, end: 20210128

REACTIONS (5)
  - Febrile neutropenia [Recovered/Resolved]
  - Febrile neutropenia [Recovered/Resolved]
  - Abscess limb [Recovered/Resolved]
  - Abscess limb [Recovered/Resolved]
  - COVID-19 [Unknown]

NARRATIVE: CASE EVENT DATE: 20210129
